FAERS Safety Report 16426260 (Version 3)
Quarter: 2019Q3

REPORT INFORMATION
  Report Type: Spontaneous
  Country: FR (occurrence: FR)
  Receive Date: 20190613
  Receipt Date: 20190930
  Transmission Date: 20191004
  Serious: Yes (Other)
  Sender: FDA-Public Use
  Company Number: FR-PFIZER INC-2019245038

PATIENT
  Age: 14 Year
  Sex: Female
  Weight: 55 kg

DRUGS (3)
  1. OROMONE [Concomitant]
     Active Substance: ESTRADIOL
     Indication: GROWTH RETARDATION
     Dosage: 8 MG, 1X/DAY
     Route: 048
     Dates: start: 201804
  2. LUTERAN [Concomitant]
     Active Substance: CHLORMADINONE ACETATE
     Dosage: 10 MG, 15 DAYS/MONTH
     Route: 048
     Dates: start: 201804
  3. SOMAVERT [Suspect]
     Active Substance: PEGVISOMANT
     Indication: ACROMEGALY
     Dosage: 10 MG, 1X/DAY
     Route: 058
     Dates: start: 201804, end: 20190515

REACTIONS (2)
  - Injection site atrophy [Recovered/Resolved]
  - Injection site induration [Recovered/Resolved]

NARRATIVE: CASE EVENT DATE: 201811
